FAERS Safety Report 7130099-3 (Version None)
Quarter: 2010Q4

REPORT INFORMATION
  Report Type: 
  Country: None (occurrence: None)
  Receive Date: 20101201
  Receipt Date: 20101122
  Transmission Date: 20110411
  Serious: No
  Sender: FDA-Public Use
  Company Number: US-BIOGENIDEC-2010BI041593

PATIENT
  Age: 29 Year
  Sex: Female

DRUGS (2)
  1. TYSABRI [Suspect]
     Indication: MULTIPLE SCLEROSIS
     Route: 042
     Dates: start: 20100801
  2. CELEXA [Concomitant]
     Indication: DEPRESSION
     Route: 048
     Dates: start: 20090101

REACTIONS (3)
  - ANGER [None]
  - DEPRESSION [None]
  - FEELING ABNORMAL [None]
